FAERS Safety Report 6710500-7 (Version None)
Quarter: 2010Q2

REPORT INFORMATION
  Report Type: 
  Country: None (occurrence: None)
  Receive Date: 20100430
  Receipt Date: 20100422
  Transmission Date: 20101027
  Serious: Yes (Hospitalization)
  Sender: FDA-Public Use
  Company Number: 2010SP023286

PATIENT
  Age: 70 Year
  Sex: Male

DRUGS (9)
  1. ORGARAN [Suspect]
     Indication: THROMBOSIS PROPHYLAXIS
     Dosage: 750 IU;BID;SC
     Route: 058
     Dates: start: 20091110
  2. ARIXTRA [Suspect]
     Indication: THROMBOCYTOPENIA
     Dosage: 1 DF;QD;SC
     Route: 058
     Dates: start: 20091026, end: 20091109
  3. ARIXTRA [Suspect]
     Indication: THROMBOSIS PROPHYLAXIS
     Dosage: 1 DF;QD;SC
     Route: 058
     Dates: start: 20091026, end: 20091109
  4. LOVENOX [Concomitant]
  5. CARDENSIEL [Concomitant]
  6. CRESTOR [Concomitant]
  7. GABAPENTIN [Concomitant]
  8. ALDACTONE [Concomitant]
  9. NEXIUM [Concomitant]

REACTIONS (3)
  - ATRIAL FIBRILLATION [None]
  - PERICARDIAL EFFUSION [None]
  - THROMBOCYTOPENIA [None]
